FAERS Safety Report 17762165 (Version 2)
Quarter: 2020Q3

REPORT INFORMATION
  Report Type: Report from Study
  Country: TW (occurrence: TW)
  Receive Date: 20200508
  Receipt Date: 20200512
  Transmission Date: 20201105
  Serious: Yes (Hospitalization)
  Sender: FDA-Public Use
  Company Number: NVSC2020TW117359

PATIENT
  Age: 57 Year
  Sex: Female
  Weight: 75 kg

DRUGS (5)
  1. EGF816 [Suspect]
     Active Substance: NAZARTINIB
     Dosage: 0 UNK
     Route: 048
     Dates: start: 20200429
  2. EGF816 [Suspect]
     Active Substance: NAZARTINIB
     Indication: NON-SMALL CELL LUNG CANCER
     Dosage: 100 MG, EVERYDAY
     Route: 048
     Dates: start: 20181231, end: 20190804
  3. EGF816 [Suspect]
     Active Substance: NAZARTINIB
     Dosage: 0 UNK
     Route: 048
     Dates: start: 20190805, end: 20190808
  4. EGF816 [Suspect]
     Active Substance: NAZARTINIB
     Dosage: 100 MG, EVERYDAY
     Route: 048
     Dates: start: 20190809, end: 20200428
  5. TRAMETINIB [Suspect]
     Active Substance: TRAMETINIB
     Indication: NON-SMALL CELL LUNG CANCER
     Dosage: 1 MG, QD
     Route: 048
     Dates: start: 20190617

REACTIONS (1)
  - Diarrhoea [Recovering/Resolving]

NARRATIVE: CASE EVENT DATE: 20200429
